FAERS Safety Report 7565566-1 (Version None)
Quarter: 2011Q2

REPORT INFORMATION
  Report Type: 
  Country: None (occurrence: None)
  Receive Date: 20110615
  Receipt Date: 20110531
  Transmission Date: 20111010
  Serious: Yes (Hospitalization)
  Sender: FDA-Public Use
  Company Number: DSJ-2011-00404

PATIENT
  Age: 73 Year
  Sex: Male
  Weight: 64 kg

DRUGS (8)
  1. MYORELARK (EPERISONE HYDROCHLORIDE) (EPERISONE HYDROCHLORIDE) [Suspect]
     Dosage: 150
     Dates: end: 20110118
  2. NORVASC [Concomitant]
  3. MECOBALAMIN (MECOBALAMIN) (MECOBALAMIN) [Suspect]
     Dosage: 1.5 MG
     Dates: end: 20110118
  4. REXALTAS (OLMESARTAN MEDOXOMIL/AZELNIDIPINE) (TABLET) [Concomitant]
  5. LOXOMARIN (LOXOPROFEN SODIUM) (LOXOPROFEN SODIUM) [Suspect]
     Dosage: 180 MG
     Dates: end: 20110118
  6. OLMETEC (OLMESARTAN MEDOXOMIL) (TABLET) (OLMESARTAN MEDOXOMIL) [Suspect]
     Indication: ESSENTIAL HYPERTENSION
     Dosage: 20 MG, PER ORAL; 20 MG, PER ORAL
     Route: 048
     Dates: start: 20100717, end: 20110118
  7. OLMETEC (OLMESARTAN MEDOXOMIL) (TABLET) (OLMESARTAN MEDOXOMIL) [Suspect]
     Indication: ESSENTIAL HYPERTENSION
     Dosage: 20 MG, PER ORAL; 20 MG, PER ORAL
     Route: 048
     Dates: start: 20110209, end: 20110420
  8. LACMARZE (CETRAZATE HYDROCHLORIDE) (CAPSULE) (CETRAZATE  HYDROCHLORIDE [Suspect]
     Dosage: 600 MG
     Dates: end: 20110118

REACTIONS (2)
  - CONVULSION [None]
  - HEPATITIS ACUTE [None]
